FAERS Safety Report 7564137-0 (Version None)
Quarter: 2011Q2

REPORT INFORMATION
  Report Type: 
  Country: None (occurrence: None)
  Receive Date: 20110622
  Receipt Date: 20110609
  Transmission Date: 20111010
  Serious: Yes (Hospitalization)
  Sender: FDA-Public Use
  Company Number: GR-AMGEN-GRCSP2011029578

PATIENT
  Sex: Female

DRUGS (4)
  1. PROLIA [Suspect]
     Indication: OSTEOPOROSIS
     Dosage: UNK
  2. LOSEC                              /00661201/ [Concomitant]
     Dosage: UNK
  3. VASTAREL [Concomitant]
     Dosage: UNK
  4. ALLOPURINOL [Concomitant]
     Dosage: UNK

REACTIONS (6)
  - TETANY [None]
  - VOMITING [None]
  - HYPOCALCAEMIA [None]
  - BLOOD PARATHYROID HORMONE INCREASED [None]
  - TROUSSEAU'S SYNDROME [None]
  - BLOOD CALCIUM DECREASED [None]
